FAERS Safety Report 12259007 (Version 1)
Quarter: 2016Q2

REPORT INFORMATION
  Report Type: Spontaneous
  Country: US (occurrence: US)
  Receive Date: 20160412
  Receipt Date: 20160412
  Transmission Date: 20160815
  Serious: No
  Sender: FDA-Public Use
  Company Number: US-SA-2015SA069151

PATIENT
  Age: 14 Year
  Sex: Female

DRUGS (1)
  1. ALLEGRA ALLERGY [Suspect]
     Active Substance: FEXOFENADINE HYDROCHLORIDE
     Indication: SEASONAL ALLERGY
     Dosage: FREQUENCY: 3 DAYS?TAKEN FROM- HER DAUGHTER TOOK THE ALLEGRA ALLERGY 24H ON MAY 11
     Route: 048

REACTIONS (3)
  - Nausea [Unknown]
  - Feeling abnormal [Unknown]
  - Malaise [Unknown]
